FAERS Safety Report 9503044 (Version 3)
Quarter: 2013Q4

REPORT INFORMATION
  Report Type: Report from Study
  Country: CA (occurrence: CA)
  Receive Date: 20130906
  Receipt Date: 20131122
  Transmission Date: 20140711
  Serious: Yes (Other)
  Sender: FDA-Public Use
  Company Number: PHHO2009CA14396

PATIENT
  Age: 56 Year
  Sex: Male
  Weight: 95.3 kg

DRUGS (2)
  1. ALISKIREN [Suspect]
     Indication: CORONARY ARTERY DISEASE
     Dosage: 150 MG, UNK
     Route: 048
     Dates: start: 20091113, end: 20091114
  2. NO TREATMENT RECEIVED [Suspect]
     Indication: CORONARY ARTERY DISEASE
     Dosage: NO TREATMENT
     Route: 048

REACTIONS (6)
  - Urticaria [Recovered/Resolved]
  - Oedema peripheral [Recovered/Resolved]
  - Arthralgia [Recovered/Resolved]
  - Dyspnoea [Recovered/Resolved]
  - Rash [Recovered/Resolved]
  - Chest discomfort [Recovered/Resolved]
